FAERS Safety Report 16789274 (Version 9)
Quarter: 2020Q2

REPORT INFORMATION
  Report Type: Report from Study
  Country: PT (occurrence: PT)
  Receive Date: 20190910
  Receipt Date: 20200610
  Transmission Date: 20200713
  Serious: Yes (Hospitalization, Other)
  Sender: FDA-Public Use
  Company Number: PT-AUROBINDO-AUR-APL-2019-058598

PATIENT
  Age: 19 Year
  Sex: Male

DRUGS (2)
  1. CHLORPROMAZINE HYDROCHLORIDE. [Suspect]
     Active Substance: CHLORPROMAZINE HYDROCHLORIDE
     Indication: INSOMNIA
     Dosage: UNK
     Route: 065
     Dates: start: 20190601
  2. IBUPROFEN. [Suspect]
     Active Substance: IBUPROFEN
     Indication: COUGH
     Dosage: UNK UNK, EVERY WEEK
     Route: 065

REACTIONS (14)
  - Deficiency of bile secretion [Unknown]
  - Drug-induced liver injury [Unknown]
  - Blood bilirubin increased [Recovering/Resolving]
  - Cough [Unknown]
  - Intentional product misuse [Unknown]
  - Liver injury [Unknown]
  - Choluria [Unknown]
  - Anuria [Unknown]
  - Bilirubin conjugated increased [Unknown]
  - Asthenia [Unknown]
  - Product use in unapproved indication [Unknown]
  - Condition aggravated [Recovering/Resolving]
  - Pruritus [Unknown]
  - Jaundice [Unknown]
